FAERS Safety Report 16384520 (Version 1)
Quarter: 2019Q3

REPORT INFORMATION
  Report Type: Spontaneous
  Country: US (occurrence: US)
  Receive Date: 20190531
  Receipt Date: 20190531
  Transmission Date: 20191004
  Serious: No
  Sender: FDA-Public Use
  Company Number: None

PATIENT
  Age: 26 Year
  Sex: Male
  Weight: 81 kg

DRUGS (1)
  1. BUPROPION HYDROCHLORIDE EXTENDED RELEASE TABLES, USP (XL) [Suspect]
     Active Substance: BUPROPION HYDROCHLORIDE
     Indication: DEPRESSION
     Dosage: ?          QUANTITY:30 TABLET(S);?
     Route: 048
     Dates: start: 20190522

REACTIONS (3)
  - Anorgasmia [None]
  - Erectile dysfunction [None]
  - Sensory loss [None]

NARRATIVE: CASE EVENT DATE: 20190531
